FAERS Safety Report 23074141 (Version 1)
Quarter: 2023Q4

REPORT INFORMATION
  Report Type: Report from Study
  Country: CA (occurrence: CA)
  Receive Date: 20231017
  Receipt Date: 20231017
  Transmission Date: 20240110
  Serious: Yes (Other)
  Sender: FDA-Public Use
  Company Number: CA-PFIZER INC-202300318389

PATIENT
  Age: 30 Year
  Sex: Female

DRUGS (2)
  1. ADALIMUMAB [Suspect]
     Active Substance: ADALIMUMAB\ISOPROPYL ALCOHOL
     Indication: Ankylosing spondylitis
     Dosage: 1 EVERY 2 WEEKS
     Route: 065
  2. ADALIMUMAB [Suspect]
     Active Substance: ADALIMUMAB\ISOPROPYL ALCOHOL
     Dosage: 1 EVERY 1 WEEKS
     Route: 065

REACTIONS (6)
  - Infection [Unknown]
  - Injection related reaction [Unknown]
  - Musculoskeletal stiffness [Unknown]
  - Pain [Unknown]
  - Therapeutic product effect decreased [Unknown]
  - Product use issue [Unknown]
